FAERS Safety Report 11714441 (Version 11)
Quarter: 2017Q2

REPORT INFORMATION
  Report Type: Spontaneous
  Country: US (occurrence: US)
  Receive Date: 20151109
  Receipt Date: 20170629
  Transmission Date: 20170829
  Serious: Yes (Other)
  Sender: FDA-Public Use
  Company Number: PHEH2015US022669

PATIENT
  Sex: Female
  Weight: 50.79 kg

DRUGS (3)
  1. ONDANSETRON HYDROCHLORIDE. [Suspect]
     Active Substance: ONDANSETRON HYDROCHLORIDE
     Indication: PRODUCT USED FOR UNKNOWN INDICATION
     Dosage: 4 TO 8 MG
     Route: 048
  2. ZOFRAN ODT [Suspect]
     Active Substance: ONDANSETRON HYDROCHLORIDE
     Indication: VOMITING IN PREGNANCY
     Dosage: 8 MG, Q8H
     Route: 048
     Dates: start: 20140811, end: 20150108
  3. ONDANSETRON. [Suspect]
     Active Substance: ONDANSETRON
     Indication: VOMITING IN PREGNANCY
     Dosage: 4 MG TO 8 MG
     Route: 065

REACTIONS (20)
  - Fibrosis [Unknown]
  - Back pain [Unknown]
  - Product use in unapproved indication [Unknown]
  - Ascites [Unknown]
  - Maternal exposure during pregnancy [Unknown]
  - Vulvovaginal candidiasis [Unknown]
  - Pruritus [Unknown]
  - Dyspnoea [Unknown]
  - Placental disorder [Unknown]
  - Injury [Unknown]
  - Nasal congestion [Unknown]
  - Anxiety [Unknown]
  - Pain [Unknown]
  - Malaise [Unknown]
  - Stillbirth [Unknown]
  - Pre-eclampsia [Unknown]
  - Emotional distress [Unknown]
  - Urinary tract infection [Unknown]
  - Mirror syndrome [Unknown]
  - Swelling [Unknown]
